FAERS Safety Report 26119914 (Version 2)
Quarter: 2025Q4

REPORT INFORMATION
  Report Type: Spontaneous
  Country: US (occurrence: US)
  Receive Date: 20251204
  Receipt Date: 20251229
  Transmission Date: 20260118
  Serious: No
  Sender: NOVARTIS
  Company Number: US-002147023-NVSC2025US186060

PATIENT
  Sex: Female

DRUGS (2)
  1. RHAPSIDO [Suspect]
     Active Substance: REMIBRUTINIB
     Indication: Chronic spontaneous urticaria
     Dosage: 25 MG, Q12H
     Route: 048
     Dates: start: 20251202
  2. RHAPSIDO [Suspect]
     Active Substance: REMIBRUTINIB
     Dosage: 25 MG, BID
     Route: 048
     Dates: start: 20240411

REACTIONS (2)
  - Petechiae [Recovering/Resolving]
  - Contusion [Recovering/Resolving]

NARRATIVE: CASE EVENT DATE: 20250101
